FAERS Safety Report 4823540-X (Version None)
Quarter: 2005Q4

REPORT INFORMATION
  Report Type: 
  Country: None (occurrence: None)
  Receive Date: 20051109
  Receipt Date: 20051028
  Transmission Date: 20060501
  Serious: Yes (Hospitalization)
  Sender: FDA-Public Use
  Company Number: PHBS2005JP16103

PATIENT
  Age: 68 Year
  Sex: Female

DRUGS (5)
  1. DEPAS [Concomitant]
     Route: 048
     Dates: end: 20051001
  2. BENZBROMARONE [Concomitant]
     Route: 048
  3. KAMI-SHOYO-SAN [Concomitant]
     Dosage: UNK, UNK
     Route: 048
  4. DIGESTIVE ENZYMES [Concomitant]
  5. ESIDRI [Suspect]
     Indication: HYPERTENSION
     Dosage: 3 DF, QD
     Route: 048
     Dates: start: 20021001, end: 20051001

REACTIONS (5)
  - CHILLS [None]
  - DIARRHOEA [None]
  - NAUSEA [None]
  - TREMOR [None]
  - VOMITING [None]
